FAERS Safety Report 13577860 (Version 1)
Quarter: 2017Q2

REPORT INFORMATION
  Report Type: Other
  Country: FR (occurrence: FR)
  Receive Date: 20170524
  Receipt Date: 20170524
  Transmission Date: 20170830
  Serious: Yes (Hospitalization, Other)
  Sender: FDA-Public Use
  Company Number: FR-CELLTRION INC.-2017FR006495

PATIENT

DRUGS (7)
  1. INFLECTRA [Suspect]
     Active Substance: INFLIXIMAB-DYYB
     Indication: ALOPECIA SCARRING
     Dosage: 7.5 MG/KG, CYCLIC (EVERY 5 WEEKS)
     Route: 042
     Dates: start: 201601, end: 20170119
  2. LEXOMIL [Concomitant]
     Active Substance: BROMAZEPAM
     Route: 065
  3. NEURONTIN [Concomitant]
     Active Substance: GABAPENTIN
     Route: 065
  4. TERCIAN                            /00759301/ [Concomitant]
     Active Substance: CYAMEMAZINE
     Route: 065
  5. NORSET [Concomitant]
     Active Substance: MIRTAZAPINE
     Route: 065
  6. ABILIFY [Concomitant]
     Active Substance: ARIPIPRAZOLE
     Route: 065
  7. CYMBALTA [Concomitant]
     Active Substance: DULOXETINE HYDROCHLORIDE
     Dosage: UNK
     Route: 065

REACTIONS (1)
  - Nodular vasculitis [Recovering/Resolving]

NARRATIVE: CASE EVENT DATE: 201702
